FAERS Safety Report 21758422 (Version 1)
Quarter: 2022Q4

REPORT INFORMATION
  Report Type: Spontaneous
  Country: US (occurrence: US)
  Receive Date: 20221221
  Receipt Date: 20221221
  Transmission Date: 20230112
  Serious: Yes (Hospitalization, Other)
  Sender: FDA-Public Use
  Company Number: US-PHARMING-PHAUS2022000860

PATIENT

DRUGS (1)
  1. RUCONEST [Suspect]
     Active Substance: HUMAN C1-ESTERASE INHIBITOR
     Indication: Hereditary angioedema
     Dosage: 2100 IU, AS NEEDED
     Route: 042
     Dates: start: 20190917

REACTIONS (5)
  - Pharyngeal swelling [Recovered/Resolved]
  - Viral infection [Unknown]
  - Weight increased [Unknown]
  - Underdose [Unknown]
  - Product use in unapproved indication [Unknown]
